FAERS Safety Report 19522257 (Version 1)
Quarter: 2021Q3

REPORT INFORMATION
  Report Type: Spontaneous
  Country: US (occurrence: US)
  Receive Date: 20210712
  Receipt Date: 20210712
  Transmission Date: 20211014
  Serious: Yes (Death)
  Sender: FDA-Public Use
  Company Number: US-GENBIOPRO-2113725

PATIENT
  Age: 22 Year
  Sex: Female

DRUGS (2)
  1. MISOPROSTOL. [Interacting]
     Active Substance: MISOPROSTOL
     Route: 002
     Dates: start: 20210604, end: 20210604
  2. MIFEPRISTONE [Suspect]
     Active Substance: MIFEPRISTONE
     Route: 048
     Dates: start: 20210603, end: 20210603

REACTIONS (1)
  - Death [Fatal]

NARRATIVE: CASE EVENT DATE: 20210604
